FAERS Safety Report 5752484-4 (Version None)
Quarter: 2008Q2

REPORT INFORMATION
  Report Type: 
  Country: None (occurrence: None)
  Receive Date: 20080527
  Receipt Date: 20080527
  Transmission Date: 20081010
  Serious: Yes (Death)
  Sender: FDA-Public Use
  Company Number: None

PATIENT
  Sex: Male
  Weight: 67.586 kg

DRUGS (10)
  1. DIGITEK 0.125 MG CAREMARK [Suspect]
     Indication: ATRIAL FIBRILLATION
     Dosage: ONE EVERY OTHER DAY PO CONTINUOUS
     Route: 048
  2. WARFARIN SODIUM [Concomitant]
  3. IPRATROPIUM BROMIDE [Concomitant]
  4. ALBUTEROL SULFATE [Concomitant]
  5. ACCU-CHEK COMFORT CURVE IN VITRO STRIP [Concomitant]
  6. ACCU-CHEK SOFTCLIX LANCETS [Concomitant]
  7. COREG [Concomitant]
  8. GLIPIZIDE [Concomitant]
  9. ZEMPLAR [Concomitant]
  10. TUMS E-X [Concomitant]

REACTIONS (8)
  - ARRHYTHMIA [None]
  - ASTHMA [None]
  - CONDITION AGGRAVATED [None]
  - LOSS OF CONSCIOUSNESS [None]
  - NO THERAPEUTIC RESPONSE [None]
  - PHARMACEUTICAL PRODUCT COMPLAINT [None]
  - SUDDEN DEATH [None]
  - THERAPEUTIC AGENT TOXICITY [None]
